FAERS Safety Report 17065977 (Version 2)
Quarter: 2019Q4

REPORT INFORMATION
  Report Type: Report from Study
  Country: US (occurrence: US)
  Receive Date: 20191122
  Receipt Date: 20191126
  Transmission Date: 20200122
  Serious: Yes (Death, Other)
  Sender: FDA-Public Use
  Company Number: US-ASTRAZENECA-2019SF65412

PATIENT
  Sex: Male

DRUGS (1)
  1. TAGRISSO [Suspect]
     Active Substance: OSIMERTINIB
     Dosage: 80.0MG UNKNOWN
     Route: 048
     Dates: start: 20190822, end: 20191014

REACTIONS (3)
  - Lung cancer metastatic [Fatal]
  - Malignant neoplasm progression [Unknown]
  - Metastases to spine [Unknown]

NARRATIVE: CASE EVENT DATE: 20191019
